FAERS Safety Report 9595128 (Version 1)
Quarter: 2013Q4

REPORT INFORMATION
  Report Type: Spontaneous
  Country: US (occurrence: US)
  Receive Date: 20131004
  Receipt Date: 20131004
  Transmission Date: 20140711
  Serious: Yes (Hospitalization)
  Sender: FDA-Public Use
  Company Number: US-BAYER-2013-119653

PATIENT
  Age: 47 Year
  Sex: Female
  Weight: 72.56 kg

DRUGS (7)
  1. YAZ [Suspect]
  2. LEVOXYL [Concomitant]
     Indication: HYPOTHYROIDISM
     Dosage: 137 MCG/24HR, UNK
  3. CLOBETASOL PROPIONATE [Concomitant]
     Dosage: 0.05 %, UNK
  4. PROCHLORPERAZINE [Concomitant]
     Dosage: 5 MG, UNK
  5. HYDROCODONE BITARTRATE [Concomitant]
  6. PERCOCET [OXYCODONE HYDROCHLORIDE,OXYCODONE TEREPHTHALATE,PARACETA [Concomitant]
  7. OXYCODONE [Concomitant]

REACTIONS (1)
  - Pulmonary embolism [None]
